FAERS Safety Report 15341913 (Version 1)
Quarter: 2018Q3

REPORT INFORMATION
  Report Type: Spontaneous
  Country: IT (occurrence: IT)
  Receive Date: 20180901
  Receipt Date: 20180901
  Transmission Date: 20181010
  Serious: Yes (Hospitalization)
  Sender: FDA-Public Use
  Company Number: IT-AMGEN-ITASP2018118953

PATIENT
  Age: 22 Year
  Sex: Male

DRUGS (8)
  1. ALLOPURINOLO [Concomitant]
     Active Substance: ALLOPURINOL
     Dosage: 600 MG, UNK
  2. BLINCYTO [Suspect]
     Active Substance: BLINATUMOMAB
     Dosage: 28 MUG, QD
     Route: 065
     Dates: start: 20180712
  3. DECADRON [Concomitant]
     Active Substance: DEXAMETHASONE
  4. BLINCYTO [Suspect]
     Active Substance: BLINATUMOMAB
     Dosage: 09 MUG, QD
     Route: 065
     Dates: start: 20180705, end: 20180711
  5. ACICLOVIR [Concomitant]
     Active Substance: ACYCLOVIR
     Indication: ANTIVIRAL PROPHYLAXIS
     Dosage: 1 DF, UNK
  6. NISTATINA [Concomitant]
     Active Substance: NYSTATIN
     Dosage: 6 ML, UNK
  7. BLINCYTO [Suspect]
     Active Substance: BLINATUMOMAB
     Indication: ACUTE LYMPHOCYTIC LEUKAEMIA
     Dosage: 9 MUG, CYCLICAL
     Route: 065
     Dates: start: 20180622, end: 20180626
  8. KEPPRA [Concomitant]
     Active Substance: LEVETIRACETAM
     Dosage: 2 DF, UNK

REACTIONS (2)
  - Hypertransaminasaemia [Recovered/Resolved]
  - Hepatotoxicity [Recovered/Resolved]

NARRATIVE: CASE EVENT DATE: 20180626
